FAERS Safety Report 6331360-2 (Version None)
Quarter: 2009Q3

REPORT INFORMATION
  Report Type: 
  Country: None (occurrence: None)
  Receive Date: 20090827
  Receipt Date: 20090825
  Transmission Date: 20100115
  Serious: Yes (Hospitalization)
  Sender: FDA-Public Use
  Company Number: FR-WYE-G04301209

PATIENT
  Age: 13 Year
  Sex: Female

DRUGS (3)
  1. ADVIL [Suspect]
     Dosage: OVERDOSE AMOUNT : 5 DOSE-FORMS IN ONE SINGLE DOSE
     Route: 048
     Dates: start: 20080929, end: 20080929
  2. DOLIPRANE [Suspect]
     Dosage: OVERDOSE AMOUNT : 1 G IN ONE SINGLE DOSE
     Route: 048
     Dates: start: 20080929, end: 20080929
  3. DI-ANTALVIC [Suspect]
     Dosage: OVERDOSE AMOUNT : 5 DOSE-FORMS IN ONE SINGLE DOSE
     Route: 048
     Dates: start: 20080929, end: 20080929

REACTIONS (5)
  - ABDOMINAL PAIN [None]
  - ANALGESIC DRUG LEVEL INCREASED [None]
  - ASPARTATE AMINOTRANSFERASE INCREASED [None]
  - MULTIPLE DRUG OVERDOSE INTENTIONAL [None]
  - NAUSEA [None]
